FAERS Safety Report 6679507-2 (Version None)
Quarter: 2010Q2

REPORT INFORMATION
  Report Type: 
  Country: None (occurrence: None)
  Receive Date: 20100413
  Receipt Date: 20100406
  Transmission Date: 20101027
  Serious: Yes (Death, Other)
  Sender: FDA-Public Use
  Company Number: IL-GENZYME-CERZ-1001242

PATIENT

DRUGS (1)
  1. BLINDED CEREZYME [Suspect]
     Indication: GAUCHER'S DISEASE
     Dosage: 2200 U, Q4W
     Route: 042
     Dates: start: 20040101

REACTIONS (1)
  - CARDIAC ARREST [None]
